FAERS Safety Report 23182497 (Version 1)
Quarter: 2023Q4

REPORT INFORMATION
  Report Type: Report from Study
  Country: US (occurrence: US)
  Receive Date: 20231114
  Receipt Date: 20231114
  Transmission Date: 20240110
  Serious: Yes (Hospitalization, Other)
  Sender: FDA-Public Use
  Company Number: US-BAUSCH-BL-2023-001332

PATIENT
  Age: 69 Year
  Sex: Male
  Weight: 92.2 kg

DRUGS (10)
  1. XIFAXAN [Suspect]
     Active Substance: RIFAXIMIN
     Indication: Hepatic encephalopathy
     Route: 048
     Dates: start: 20210806
  2. LACTULOSE [Suspect]
     Active Substance: LACTULOSE
     Indication: Hepatic encephalopathy
     Dosage: TAKE 30 ML BY MOUTH 3 TIMES A DAY, MAY TITRATE TO ACHIEVE 3-4 SOFT BOWEL MOVEMENTS PER DAY.
     Route: 048
     Dates: start: 20230127
  3. LASIX [Concomitant]
     Active Substance: FUROSEMIDE
     Indication: Product used for unknown indication
     Route: 048
     Dates: start: 20230417
  4. ALDACTONE [Concomitant]
     Active Substance: SPIRONOLACTONE
     Indication: Product used for unknown indication
     Dosage: TAKE 50 MG BY MOUTH
     Route: 048
     Dates: start: 20211122, end: 20231023
  5. VITAMIN A [Concomitant]
     Active Substance: VITAMIN A
     Indication: Product used for unknown indication
  6. DIALYVITE VITAMIN D3 MAX [Concomitant]
     Indication: Product used for unknown indication
     Route: 048
     Dates: end: 20230928
  7. .ALPHA.-TOCOPHEROL [Concomitant]
     Active Substance: .ALPHA.-TOCOPHEROL
     Indication: Product used for unknown indication
  8. ZYLOPRIM [Concomitant]
     Active Substance: ALLOPURINOL
     Indication: Product used for unknown indication
     Route: 048
     Dates: start: 20230417
  9. SYNTHROID [Concomitant]
     Active Substance: LEVOTHYROXINE SODIUM
     Indication: Product used for unknown indication
     Dosage: EMPTY STOMACH
     Route: 048
     Dates: start: 20230530
  10. PROTONIX [Concomitant]
     Active Substance: PANTOPRAZOLE SODIUM
     Indication: Product used for unknown indication
     Route: 048
     Dates: end: 20230724

REACTIONS (6)
  - Neuropathy peripheral [Unknown]
  - Facet joint syndrome [Unknown]
  - Hepatic encephalopathy [Recovered/Resolved]
  - Condition aggravated [Recovered/Resolved]
  - Back pain [Unknown]
  - Fatigue [Unknown]
